FAERS Safety Report 4951648-7 (Version None)
Quarter: 2006Q1

REPORT INFORMATION
  Report Type: 
  Country: None (occurrence: None)
  Receive Date: 20060317
  Receipt Date: 20060309
  Transmission Date: 20060701
  Serious: Yes (Hospitalization)
  Sender: FDA-Public Use
  Company Number: 2005158032

PATIENT
  Age: 63 Year
  Sex: Male

DRUGS (12)
  1. LYRICA [Suspect]
     Indication: DIABETIC NEUROPATHY
     Dosage: 600 MG (300 MG, 2 IN 1 D), ORAL
     Route: 048
     Dates: start: 20050923, end: 20051107
  2. ALL OTHER THERAPEUTIC PRODUCTS (ALL OTHER THERAPEUTIC PRODUCTS) [Concomitant]
  3. INSULIN GLARGINE (INSULIN GLARGINE) [Concomitant]
  4. INSULIN ASPART (INSULIN ASPART) [Concomitant]
  5. METFORMIN HCL [Concomitant]
  6. DIGOXIN [Concomitant]
  7. ASPIRIN [Concomitant]
  8. BENAZEPRIL (BENAZEPRIL) [Concomitant]
  9. SPIRONOLACTONE [Concomitant]
  10. FUROSEMIDE [Concomitant]
  11. PRAVASTATIN [Concomitant]
  12. PANTOPRAZOL (PANTOPRAZOLE) [Concomitant]

REACTIONS (5)
  - RENAL FAILURE [None]
  - SODIUM RETENTION [None]
  - SOMNOLENCE [None]
  - TREMOR [None]
  - VERTIGO [None]
